FAERS Safety Report 25567188 (Version 1)
Quarter: 2025Q3

REPORT INFORMATION
  Report Type: Spontaneous
  Country: CA (occurrence: CA)
  Receive Date: 20250716
  Receipt Date: 20250716
  Transmission Date: 20251021
  Serious: Yes (Disabling)
  Sender: TEVA
  Company Number: CA-TEVA-VS-3351775

PATIENT
  Age: 62 Year
  Sex: Female
  Weight: 58 kg

DRUGS (1)
  1. LISDEXAMFETAMINE [Suspect]
     Active Substance: LISDEXAMFETAMINE
     Indication: Attention deficit hyperactivity disorder
     Route: 048

REACTIONS (7)
  - Oral pain [Recovered/Resolved]
  - Speech disorder [Recovered/Resolved]
  - Eructation [Recovered/Resolved]
  - Discomfort [Recovered/Resolved]
  - Dysphagia [Recovered/Resolved]
  - Aphthous ulcer [Recovered/Resolved]
  - Flatulence [Recovered/Resolved]
